FAERS Safety Report 25799547 (Version 2)
Quarter: 2025Q4

REPORT INFORMATION
  Report Type: Report from Study
  Country: US (occurrence: US)
  Receive Date: 20250914
  Receipt Date: 20251113
  Transmission Date: 20260118
  Serious: No
  Sender: SANOFI AVENTIS
  Company Number: US-SA-2025SA271464

PATIENT
  Sex: Female
  Weight: 77 kg

DRUGS (1)
  1. DUPILUMAB [Suspect]
     Active Substance: DUPILUMAB
     Indication: Asthma
     Dosage: 300 MG, QOW
     Route: 058

REACTIONS (5)
  - Asthma [Unknown]
  - Dyspnoea [Unknown]
  - Productive cough [Unknown]
  - Chest discomfort [Unknown]
  - Incorrect dose administered [Unknown]
